FAERS Safety Report 6114932-X (Version None)
Quarter: 2009Q1

REPORT INFORMATION
  Report Type: 
  Country: None (occurrence: None)
  Receive Date: 20090313
  Receipt Date: 20090303
  Transmission Date: 20090719
  Serious: Yes (Other)
  Sender: FDA-Public Use
  Company Number: GB-TEVA-187190ISR

PATIENT
  Age: 65 Year
  Sex: Male

DRUGS (3)
  1. VINCRISTINE [Suspect]
     Indication: GLIOBLASTOMA MULTIFORME
  2. PROCARBAZINE [Suspect]
     Indication: GLIOBLASTOMA MULTIFORME
  3. LOMUSTINE [Suspect]
     Indication: GLIOBLASTOMA MULTIFORME

REACTIONS (1)
  - LIVER FUNCTION TEST ABNORMAL [None]
